FAERS Safety Report 9562385 (Version 1)
Quarter: 2013Q3

REPORT INFORMATION
  Report Type: Report from Study
  Country: US (occurrence: US)
  Receive Date: 20130927
  Receipt Date: 20130927
  Transmission Date: 20140515
  Serious: Yes (Other)
  Sender: FDA-Public Use
  Company Number: US-ABBVIE-13P-163-1149472-00

PATIENT
  Sex: Male

DRUGS (12)
  1. HUMIRA [Suspect]
     Indication: CROHN^S DISEASE
  2. METHOTREXATE [Suspect]
     Indication: PRODUCT USED FOR UNKNOWN INDICATION
  3. ANTI-HYPERTENSIVE MEDICATION [Suspect]
     Indication: HYPERTENSION
  4. B-12 [Concomitant]
     Indication: CROHN^S DISEASE
  5. POTASSIUM CITRATE [Concomitant]
     Indication: PROPHYLAXIS
     Dosage: 10 MEQ, 1 TAB IN AM AND 1 TAB IN PM DAILY
  6. POTASSIUM CITRATE [Concomitant]
     Indication: NEPHROLITHIASIS
  7. MULTIVITAMIN [Concomitant]
     Indication: VITAMIN SUPPLEMENTATION
     Dosage: DAILY
  8. IMURAN [Concomitant]
     Indication: PRODUCT USED FOR UNKNOWN INDICATION
     Dates: start: 2011
  9. EXFORGE [Concomitant]
     Indication: HYPERTENSION
     Dosage: 1 - 5/160MG TAB DAILY
  10. ANDROGEL [Concomitant]
     Indication: BLOOD TESTOSTERONE DECREASED
     Dosage: 2 PUMPS, 1 TO EACH SHOULDER DAILY
     Route: 061
     Dates: start: 2012
  11. VITAMIN D [Concomitant]
     Indication: VITAMIN D DECREASED
     Dates: start: 2012
  12. ALENDRONATE SODIUM [Concomitant]
     Indication: BONE LOSS
     Dates: start: 2012

REACTIONS (10)
  - Hepatic cirrhosis [Recovered/Resolved]
  - Arthralgia [Recovered/Resolved]
  - Joint stiffness [Recovered/Resolved]
  - Hepatic enzyme increased [Recovered/Resolved]
  - Liver disorder [Recovered/Resolved]
  - Blood calcium increased [Recovered/Resolved]
  - Sluggishness [Recovering/Resolving]
  - Malaise [Recovering/Resolving]
  - Vitamin D decreased [Recovered/Resolved]
  - Bone loss [Unknown]
